FAERS Safety Report 17418237 (Version 1)
Quarter: 2020Q1

REPORT INFORMATION
  Report Type: Spontaneous
  Country: US (occurrence: US)
  Receive Date: 20200214
  Receipt Date: 20200214
  Transmission Date: 20200409
  Serious: Yes (Other)
  Sender: FDA-Public Use
  Company Number: None

PATIENT
  Age: 41 Year
  Weight: 114.75 kg

DRUGS (10)
  1. HYDROCHLOROTHIAZIDE. [Concomitant]
     Active Substance: HYDROCHLOROTHIAZIDE
  2. METOPROLOL. [Concomitant]
     Active Substance: METOPROLOL
  3. OMEPRAZOLE. [Concomitant]
     Active Substance: OMEPRAZOLE
  4. ZINC. [Concomitant]
     Active Substance: ZINC
  5. OXYCODONE 10MG [Suspect]
     Active Substance: OXYCODONE
     Indication: SCIATICA
     Dosage: ?          QUANTITY:1 TABLET(S);?
     Route: 048
  6. LISINOPRIL. [Concomitant]
     Active Substance: LISINOPRIL
  7. CARISOPRODOL. [Concomitant]
     Active Substance: CARISOPRODOL
  8. CALCIUM [Concomitant]
     Active Substance: CALCIUM
  9. OXYCODONE [Concomitant]
     Active Substance: OXYCODONE
  10. MAGNESIUM [Concomitant]
     Active Substance: MAGNESIUM

REACTIONS (7)
  - Product substitution issue [None]
  - Therapy non-responder [None]
  - Abdominal discomfort [None]
  - Nausea [None]
  - Malaise [None]
  - Vomiting [None]
  - Pain [None]

NARRATIVE: CASE EVENT DATE: 20200116
